FAERS Safety Report 15405248 (Version 28)
Quarter: 2023Q2

REPORT INFORMATION
  Report Type: Other
  Country: GB (occurrence: GB)
  Receive Date: 20180920
  Receipt Date: 20230616
  Transmission Date: 20230722
  Serious: Yes (Hospitalization)
  Sender: FDA-Public Use
  Company Number: GB-ROCHE-2080942

PATIENT
  Age: 49 Year
  Sex: Female
  Weight: 64 kg

DRUGS (93)
  1. ADO-TRASTUZUMAB EMTANSINE [Suspect]
     Active Substance: ADO-TRASTUZUMAB EMTANSINE
     Indication: Breast cancer metastatic
     Dosage: 240.00 MILLIGRAMS Q3W - EVERY 3 WEEKS
     Route: 042
     Dates: start: 20170201, end: 20170722
  2. ADO-TRASTUZUMAB EMTANSINE [Suspect]
     Active Substance: ADO-TRASTUZUMAB EMTANSINE
     Indication: Breast cancer
     Dosage: 230.00 MILLIGRAMS Q3W - EVERY 3 WEEKS
     Route: 042
     Dates: start: 20170816
  3. ADO-TRASTUZUMAB EMTANSINE [Suspect]
     Active Substance: ADO-TRASTUZUMAB EMTANSINE
     Route: 042
  4. ADO-TRASTUZUMAB EMTANSINE [Suspect]
     Active Substance: ADO-TRASTUZUMAB EMTANSINE
     Route: 042
  5. TRASTUZUMAB [Suspect]
     Active Substance: TRASTUZUMAB
     Indication: Breast cancer metastatic
     Dosage: MAINTENANCE DOSE
     Route: 041
     Dates: start: 20150303, end: 20170201
  6. TRASTUZUMAB [Suspect]
     Active Substance: TRASTUZUMAB
     Indication: Breast cancer
     Dosage: 504 MILLIGRAM (LOADING DOSE) TOTAL (CUMULATIVE DOSE: 22176.0MG)
     Route: 042
     Dates: start: 20150209, end: 20150209
  7. TRASTUZUMAB [Suspect]
     Active Substance: TRASTUZUMAB
     Dosage: 378 MILLIGRAM EVERY 3 WEEKS (CUMULATIVE DOSE TO FIRST REACTION: 4518.75 MG)
     Route: 042
     Dates: start: 20151222, end: 20160113
  8. TRASTUZUMAB [Suspect]
     Active Substance: TRASTUZUMAB
     Dosage: 378 MILLIGRAM EVERY 3 WEEKS (CUMULATIVE DOSE TO FIRST REACTION: 5670.75MG)
     Route: 042
     Dates: start: 20160224, end: 20160406
  9. TRASTUZUMAB [Suspect]
     Active Substance: TRASTUZUMAB
     Dosage: 399 MG EVERY 3 WEEKS (CUMULATIVE DOSE: 950.0MG)
     Route: 042
     Dates: start: 20150203, end: 20150203
  10. TRASTUZUMAB [Suspect]
     Active Substance: TRASTUZUMAB
     Dosage: 399 MILLIGRAM EVERY 3 WEEKS (CUMULATIVE DOSE TO FIRST REACTION: 3990.7917 MG)
     Route: 042
     Dates: start: 20151111, end: 20151202
  11. TRASTUZUMAB [Suspect]
     Active Substance: TRASTUZUMAB
     Dosage: 420 MG EVERY 3 WEEKS (CUMULATIVE DOSE TO FIRST REACTION: 7560.0 MG)
     Route: 042
     Dates: start: 20160427, end: 20170111
  12. TRASTUZUMAB [Suspect]
     Active Substance: TRASTUZUMAB
     Route: 042
     Dates: start: 20170201, end: 20170722
  13. TRASTUZUMAB [Suspect]
     Active Substance: TRASTUZUMAB
     Dosage: 399 MILLIGRAM EVERY 3 WEEKS SUBSEQUENT DOSE RECEIVED ON 11/NOV/2018, (CUMULATIVE DOSE TO FIRST REACT
     Route: 042
     Dates: start: 20160203, end: 20160203
  14. TRASTUZUMAB [Suspect]
     Active Substance: TRASTUZUMAB
     Route: 042
     Dates: start: 20170816
  15. TRASTUZUMAB [Suspect]
     Active Substance: TRASTUZUMAB
     Dosage: 378 MG EVERY 3 WEEKS
     Route: 042
     Dates: start: 20150210
  16. TRASTUZUMAB [Suspect]
     Active Substance: TRASTUZUMAB
     Dosage: 378 MILLIGRAM EVERY 3 WEEKS (MAINTENANCE DOSE) (CUMULATIVE DOSE TO FIRST REACTION: 773.25 MG)
     Route: 042
     Dates: start: 20150303, end: 20151021
  17. TRASTUZUMAB [Suspect]
     Active Substance: TRASTUZUMAB
     Dosage: 420 MILLIGRAM EVERY 3 WEEKS
     Route: 042
     Dates: start: 20151111, end: 20151202
  18. TRASTUZUMAB [Suspect]
     Active Substance: TRASTUZUMAB
     Route: 042
  19. TRASTUZUMAB [Suspect]
     Active Substance: TRASTUZUMAB
     Dosage: 584 MG TOTAL LOADING DOSE EVERY 3 WEEKS
     Route: 042
     Dates: start: 20150209, end: 20150209
  20. TRASTUZUMAB [Suspect]
     Active Substance: TRASTUZUMAB
     Dosage: 420MG EVERY THREE WEEKS (420 MG, Q3W)
     Route: 042
     Dates: start: 20160404, end: 20170111
  21. TRASTUZUMAB [Suspect]
     Active Substance: TRASTUZUMAB
     Route: 042
  22. PERTUZUMAB [Suspect]
     Active Substance: PERTUZUMAB
     Indication: Breast cancer metastatic
     Dosage: MAINTENANCE DOSE 420 MG EVERY 3 WEEKS (CUMULATIVE DOSE: 859.999999 MG)
     Route: 042
     Dates: start: 20150210
  23. PERTUZUMAB [Suspect]
     Active Substance: PERTUZUMAB
     Indication: Breast cancer
     Dosage: LOADING DOSE, 840 MG TOTAL LOADING DOSE (CUMULATIVE DOSE TO FIRST REACTION: 54564.9999 MG)
     Route: 042
     Dates: start: 20150209, end: 20150209
  24. PERTUZUMAB [Suspect]
     Active Substance: PERTUZUMAB
     Dosage: 420 MG, TIW (MAINTENANCE DOSE SUBSEQUENT DOSE RECEIVED ON 22/DEC/2015, 24/FEB/2016)
     Route: 042
     Dates: start: 20150204
  25. PERTUZUMAB [Suspect]
     Active Substance: PERTUZUMAB
     Dosage: 420 MG, TIW
     Route: 042
     Dates: start: 20150304, end: 20170201
  26. PERTUZUMAB [Suspect]
     Active Substance: PERTUZUMAB
     Dosage: 420 MG, EVERY 3 WEEKS (CUMULATIVE DOSE: 880.0 MG)
     Route: 042
     Dates: start: 20150209, end: 20170201
  27. PERTUZUMAB [Suspect]
     Active Substance: PERTUZUMAB
     Route: 042
  28. PERTUZUMAB [Suspect]
     Active Substance: PERTUZUMAB
     Dosage: 420 MG, TIW (MAINTENANCE DOSE SUBSEQUENT DOSE RECEIVED ON 22/DEC/2015, 24/FEB/2016) (CUMULATIVE DOSE
     Route: 042
     Dates: start: 20150204
  29. PERTUZUMAB [Suspect]
     Active Substance: PERTUZUMAB
     Dosage: 430 EVERY 3 WEEKS MAINTENANCE DOSE
     Route: 042
  30. PERTUZUMAB [Suspect]
     Active Substance: PERTUZUMAB
     Route: 065
  31. PERTUZUMAB [Suspect]
     Active Substance: PERTUZUMAB
     Route: 042
  32. DOCETAXEL [Suspect]
     Active Substance: DOCETAXEL
     Indication: Breast cancer metastatic
     Dosage: 130 MILLIGRAM EVERY 3 WEEKS (CUMULATIVE DOSE:1040 MG) NUMBER OF CYCLE PER REGIMEN 6
     Route: 042
     Dates: start: 20150210, end: 20150708
  33. DOCETAXEL [Suspect]
     Active Substance: DOCETAXEL
     Indication: Breast cancer
     Dosage: 390 MG, EVERY 1 WEEK (130 MILLIGRAM EVERY 3 WEEKS (CUMULATIVE DOSE:266.1905 MG) NUMBER OF CYCLE REGI
     Route: 042
     Dates: start: 20150210, end: 20150708
  34. DOCETAXEL [Suspect]
     Active Substance: DOCETAXEL
     Route: 042
     Dates: start: 20150210, end: 20150708
  35. DOCETAXEL [Suspect]
     Active Substance: DOCETAXEL
     Route: 065
  36. DOCETAXEL [Suspect]
     Active Substance: DOCETAXEL
     Dosage: 130 MILLIGRAM (CUMULATIVE DOSE:1040 MG) NUMBER OF CYCLE PER REGIMEN 6
     Route: 042
     Dates: start: 20150210, end: 20150708
  37. LETROZOLE [Suspect]
     Active Substance: LETROZOLE
     Indication: Breast cancer metastatic
     Dosage: 2.50 MILLIGRAMS O.D. - ONCE DAILY ORAL
     Route: 048
     Dates: start: 20150729
  38. LETROZOLE [Suspect]
     Active Substance: LETROZOLE
     Indication: Breast cancer
     Route: 048
     Dates: start: 20150729
  39. LETROZOLE [Suspect]
     Active Substance: LETROZOLE
     Route: 048
     Dates: start: 20170201, end: 20170722
  40. LETROZOLE [Suspect]
     Active Substance: LETROZOLE
     Route: 042
     Dates: start: 20170201, end: 20170722
  41. LETROZOLE [Suspect]
     Active Substance: LETROZOLE
     Route: 048
     Dates: start: 20150720
  42. LETROZOLE [Suspect]
     Active Substance: LETROZOLE
     Route: 065
  43. CALCIUM CARBONATE\CHOLECALCIFEROL [Concomitant]
     Active Substance: CALCIUM CARBONATE\CHOLECALCIFEROL
     Route: 048
     Dates: start: 20150729, end: 20151202
  44. CALCIUM CARBONATE\CHOLECALCIFEROL [Concomitant]
     Active Substance: CALCIUM CARBONATE\CHOLECALCIFEROL
     Route: 048
     Dates: start: 20151203, end: 20190813
  45. CALCIUM CARBONATE\CHOLECALCIFEROL [Concomitant]
     Active Substance: CALCIUM CARBONATE\CHOLECALCIFEROL
     Route: 065
     Dates: start: 20150729, end: 20151202
  46. CALCIUM CARBONATE\CHOLECALCIFEROL [Concomitant]
     Active Substance: CALCIUM CARBONATE\CHOLECALCIFEROL
     Route: 065
     Dates: start: 20151203, end: 20190813
  47. AMOXICILLIN [Concomitant]
     Active Substance: AMOXICILLIN
     Route: 048
     Dates: start: 20160816, end: 20160821
  48. AMOXICILLIN [Concomitant]
     Active Substance: AMOXICILLIN
     Route: 048
     Dates: start: 20161015, end: 20161023
  49. AMOXICILLIN [Concomitant]
     Active Substance: AMOXICILLIN
     Route: 048
     Dates: start: 20170821, end: 20170826
  50. CHLORHEXIDINE GLUCONATE [Concomitant]
     Active Substance: CHLORHEXIDINE GLUCONATE
  51. AMOXICILLIN\CLAVULANATE POTASSIUM [Concomitant]
     Active Substance: AMOXICILLIN\CLAVULANATE POTASSIUM
     Indication: Product used for unknown indication
     Dosage: 400 MG, BID
     Route: 065
     Dates: start: 20171030, end: 20171105
  52. AMOXICILLIN\CLAVULANATE POTASSIUM [Concomitant]
     Active Substance: AMOXICILLIN\CLAVULANATE POTASSIUM
     Dosage: 500 MG
     Route: 048
     Dates: start: 20170926
  53. AMOXICILLIN\CLAVULANATE POTASSIUM [Concomitant]
     Active Substance: AMOXICILLIN\CLAVULANATE POTASSIUM
     Dosage: 500 MG, TID
     Route: 048
     Dates: start: 20180526, end: 20180601
  54. AMOXICILLIN\CLAVULANATE POTASSIUM [Concomitant]
     Active Substance: AMOXICILLIN\CLAVULANATE POTASSIUM
     Dosage: 500 MG
     Route: 048
     Dates: start: 20190530, end: 20190606
  55. AMOXICILLIN\CLAVULANATE POTASSIUM [Concomitant]
     Active Substance: AMOXICILLIN\CLAVULANATE POTASSIUM
     Dosage: 500 MG
     Route: 048
     Dates: start: 20171001, end: 20171008
  56. MICONAZOLE NITRATE [Concomitant]
     Active Substance: MICONAZOLE NITRATE
     Indication: Rash
     Route: 061
     Dates: start: 20161129, end: 20170101
  57. DEXAMETHASONE [Concomitant]
     Active Substance: DEXAMETHASONE
     Indication: Nausea
     Route: 048
     Dates: start: 20150527, end: 20150708
  58. DEXAMETHASONE [Concomitant]
     Active Substance: DEXAMETHASONE
     Route: 048
     Dates: start: 20170531, end: 20170602
  59. DEXAMETHASONE [Concomitant]
     Active Substance: DEXAMETHASONE
     Route: 048
     Dates: start: 20170603, end: 20170604
  60. DEXAMETHASONE [Concomitant]
     Active Substance: DEXAMETHASONE
     Route: 048
     Dates: start: 20170616, end: 20170617
  61. DEXAMETHASONE [Concomitant]
     Active Substance: DEXAMETHASONE
     Route: 048
     Dates: start: 20170616, end: 20170619
  62. DEXAMETHASONE [Concomitant]
     Active Substance: DEXAMETHASONE
     Route: 048
     Dates: start: 20170620, end: 20170621
  63. DEXAMETHASONE [Concomitant]
     Active Substance: DEXAMETHASONE
     Route: 048
     Dates: start: 20190823
  64. BENZYDAMINE [Concomitant]
     Active Substance: BENZYDAMINE
     Dosage: MOUTHWASH,
     Dates: start: 20150307, end: 20150311
  65. BETAMETHASONE VALERATE\FUSIDIC ACID [Concomitant]
     Active Substance: BETAMETHASONE VALERATE\FUSIDIC ACID
     Route: 061
     Dates: start: 20151123
  66. FYBOGEL [Concomitant]
     Active Substance: HERBALS\PLANTAGO OVATA SEED
     Dosage: 3.50 G (GRAM) LIQUID PO (ORAL) BID (TWICE A DAY)
     Route: 048
     Dates: start: 20150312, end: 20150314
  67. LANSOPRAZOLE [Concomitant]
     Active Substance: LANSOPRAZOLE
     Route: 048
     Dates: start: 20151123
  68. LANSOPRAZOLE [Concomitant]
     Active Substance: LANSOPRAZOLE
     Route: 048
     Dates: start: 20150306
  69. LOPERAMIDE [Concomitant]
     Active Substance: LOPERAMIDE
     Route: 048
     Dates: start: 20150306, end: 20150308
  70. METOCLOPRAMIDE [Concomitant]
     Active Substance: METOCLOPRAMIDE
     Route: 050
     Dates: start: 20150527, end: 20150708
  71. METOCLOPRAMIDE [Concomitant]
     Active Substance: METOCLOPRAMIDE
     Route: 048
     Dates: start: 20170510, end: 2017
  72. METOCLOPRAMIDE [Concomitant]
     Active Substance: METOCLOPRAMIDE
     Dates: start: 20171001
  73. METRONIDAZOLE [Concomitant]
     Active Substance: METRONIDAZOLE
     Indication: Product used for unknown indication
     Route: 065
     Dates: start: 20171001, end: 20171008
  74. METRONIDAZOLE [Concomitant]
     Active Substance: METRONIDAZOLE
     Route: 065
     Dates: start: 20171030, end: 20171105
  75. METRONIDAZOLE [Concomitant]
     Active Substance: METRONIDAZOLE
     Dosage: 500 MG (0.33 DAY)
     Route: 048
     Dates: start: 20171030, end: 20171105
  76. MOVICOL [Concomitant]
     Active Substance: POLYETHYLENE GLYCOL 3350\POTASSIUM CHLORIDE\SODIUM BICARBONATE\SODIUM CHLORIDE
     Dosage: 2 OTHER
     Route: 048
     Dates: start: 20170510
  77. NAPROXEN [Concomitant]
     Active Substance: NAPROXEN
     Route: 048
     Dates: start: 20141128, end: 20191015
  78. NAPROXEN [Concomitant]
     Active Substance: NAPROXEN
     Route: 048
     Dates: start: 20170116, end: 20170116
  79. NAPROXEN [Concomitant]
     Active Substance: NAPROXEN
     Route: 048
     Dates: start: 20170802
  80. OMEPRAZOLE [Concomitant]
     Active Substance: OMEPRAZOLE
     Route: 048
     Dates: start: 20170531, end: 20170605
  81. OMEPRAZOLE [Concomitant]
     Active Substance: OMEPRAZOLE
     Route: 060
     Dates: start: 20170616, end: 20170621
  82. ONDANSETRON [Concomitant]
     Active Substance: ONDANSETRON
     Route: 042
     Dates: start: 20150527, end: 20150608
  83. ACETAMINOPHEN [Concomitant]
     Active Substance: ACETAMINOPHEN
  84. PEGFILGRASTIM [Concomitant]
     Active Substance: PEGFILGRASTIM
     Route: 058
     Dates: start: 20150211, end: 20150709
  85. SUDAFED NASAL DECONGESTANT MAXIMUM STRENGTH [Concomitant]
     Active Substance: PSEUDOEPHEDRINE HYDROCHLORIDE
     Route: 048
     Dates: start: 20160113
  86. ZOMETA [Concomitant]
     Active Substance: ZOLEDRONIC ACID
     Route: 042
     Dates: start: 20151111
  87. DOXYCYCLINE [Concomitant]
     Active Substance: DOXYCYCLINE
     Indication: Dermatitis acneiform
     Route: 048
     Dates: start: 20190607
  88. DOXYCYCLINE [Concomitant]
     Active Substance: DOXYCYCLINE
     Route: 048
     Dates: start: 20190607
  89. DOXYCYCLINE [Concomitant]
     Active Substance: DOXYCYCLINE
     Route: 065
     Dates: start: 20171106, end: 20191019
  90. DOXYCYCLINE [Concomitant]
     Active Substance: DOXYCYCLINE
     Route: 065
     Dates: start: 20171106, end: 20191019
  91. DOXYCYCLINE [Concomitant]
     Active Substance: DOXYCYCLINE
     Route: 065
     Dates: start: 20171012, end: 20171029
  92. DOXYCYCLINE [Concomitant]
     Active Substance: DOXYCYCLINE
     Route: 048
     Dates: start: 20150427, end: 20150608
  93. ERIBULIN [Concomitant]
     Active Substance: ERIBULIN
     Indication: Breast cancer metastatic
     Route: 042
     Dates: start: 20190911

REACTIONS (17)
  - Tooth abscess [Not Recovered/Not Resolved]
  - Swelling face [Recovered/Resolved with Sequelae]
  - Dermatitis acneiform [Recovered/Resolved with Sequelae]
  - Alopecia [Recovered/Resolved]
  - Anxiety [Recovered/Resolved]
  - Back pain [Recovered/Resolved]
  - Skin fissures [Recovered/Resolved]
  - Tooth infection [Recovered/Resolved]
  - Dry skin [Recovered/Resolved]
  - Blood calcium decreased [Recovered/Resolved]
  - Onychomadesis [Recovered/Resolved]
  - Facial pain [Not Recovered/Not Resolved]
  - Arthralgia [Recovered/Resolved]
  - Neuropathy peripheral [Recovered/Resolved]
  - Joint stiffness [Recovered/Resolved]
  - Tooth loss [Recovered/Resolved]
  - Weight decreased [Recovered/Resolved]

NARRATIVE: CASE EVENT DATE: 20150325
